APPROVED DRUG PRODUCT: ALBUTEROL SULFATE
Active Ingredient: ALBUTEROL SULFATE
Strength: EQ 0.5% BASE
Dosage Form/Route: SOLUTION;INHALATION
Application: A076391 | Product #001
Applicant: APOTEX INC
Approved: Apr 1, 2003 | RLD: No | RS: No | Type: DISCN